FAERS Safety Report 7426442-8 (Version None)
Quarter: 2011Q2

REPORT INFORMATION
  Report Type: 
  Country: None (occurrence: None)
  Receive Date: 20110420
  Receipt Date: 20110404
  Transmission Date: 20111010
  Serious: Yes (Other)
  Sender: FDA-Public Use
  Company Number: US-BAYER-201039790NA

PATIENT
  Age: 42 Year
  Sex: Female
  Weight: 92.971 kg

DRUGS (12)
  1. NEXIUM [Concomitant]
  2. PHENERGAN [Concomitant]
  3. KAPIDEX [Concomitant]
  4. LEVAQUIN [Concomitant]
  5. YASMIN [Suspect]
     Indication: MENSTRUAL CYCLE MANAGEMENT
     Dosage: UNK
     Route: 048
     Dates: start: 20050101, end: 20090101
  6. RESPA-DM [Concomitant]
  7. METFORMIN [Concomitant]
  8. PREVACID [Concomitant]
  9. SCOPOLAMINE [Concomitant]
  10. OCELLA [Suspect]
     Indication: MENSTRUAL CYCLE MANAGEMENT
     Dosage: UNK
     Dates: start: 20050101, end: 20090101
  11. ACTOS [Concomitant]
  12. BACTRIM [Concomitant]

REACTIONS (2)
  - BILIARY DYSKINESIA [None]
  - GALLBLADDER DISORDER [None]
